FAERS Safety Report 7595244-4 (Version None)
Quarter: 2011Q2

REPORT INFORMATION
  Report Type: 
  Country: None (occurrence: None)
  Receive Date: 20110620
  Receipt Date: 20110304
  Transmission Date: 20111010
  Serious: Yes (Hospitalization)
  Sender: FDA-Public Use
  Company Number: UTC-005551

PATIENT
  Age: 67 Year
  Sex: Female
  Weight: 75 kg

DRUGS (5)
  1. REVATIO [Concomitant]
  2. TYVASO [Suspect]
     Dosage: 288 MCG (72 MCG, 4 IN 1 D), INHALATION
     Route: 055
     Dates: start: 20100609
  3. TRACLEER [Concomitant]
  4. DIURETICS [Concomitant]
  5. COUMADIN [Concomitant]

REACTIONS (1)
  - FLUID OVERLOAD [None]
